FAERS Safety Report 11942947 (Version 1)
Quarter: 2016Q1

REPORT INFORMATION
  Report Type: Spontaneous
  Country: US (occurrence: US)
  Receive Date: 20160125
  Receipt Date: 20160125
  Transmission Date: 20160526
  Serious: Yes (Hospitalization)
  Sender: FDA-Public Use
  Company Number: US-UNITED THERAPEUTICS-UNT-2015-010023

PATIENT
  Age: 75 Year
  Sex: Female
  Weight: 98.87 kg

DRUGS (3)
  1. TRACLEER [Concomitant]
     Active Substance: BOSENTAN
     Indication: PRODUCT USED FOR UNKNOWN INDICATION
  2. REMODULIN [Suspect]
     Active Substance: TREPROSTINIL
     Indication: PULMONARY ARTERIAL HYPERTENSION
     Dosage: 0.093 ?G/KG/MIN, CONTINUING
     Route: 041
     Dates: start: 20120731
  3. WARFARIN [Concomitant]
     Active Substance: WARFARIN
     Indication: PRODUCT USED FOR UNKNOWN INDICATION

REACTIONS (10)
  - Drug dose omission [Unknown]
  - Injection site erythema [Unknown]
  - Headache [Unknown]
  - Lethargy [Unknown]
  - Condition aggravated [Unknown]
  - Dizziness [Unknown]
  - Disorientation [Unknown]
  - Device issue [Unknown]
  - Device occlusion [Unknown]
  - Asthenia [Unknown]

NARRATIVE: CASE EVENT DATE: 201508
